FAERS Safety Report 4793526-2 (Version None)
Quarter: 2005Q4

REPORT INFORMATION
  Report Type: 
  Country: None (occurrence: None)
  Receive Date: 20051006
  Receipt Date: 20050412
  Transmission Date: 20060501
  Serious: Yes (Hospitalization, Other)
  Sender: FDA-Public Use
  Company Number: 17771

PATIENT
  Age: 52 Year
  Sex: Female

DRUGS (16)
  1. DOXORUBICIN HCL [Suspect]
     Indication: BREAST CANCER
     Dates: start: 20050317, end: 20050331
  2. LEVOTHYROXINE [Concomitant]
  3. RABEPRAZOLE SODIUM [Concomitant]
  4. TRAZODONE HCL [Concomitant]
  5. MULTI-VITAMINS [Concomitant]
  6. CALCIUM GLUCONATE [Concomitant]
  7. CYANOCOBALAMIN [Concomitant]
  8. DIPHENHYDRAMINE HCL [Concomitant]
  9. ASPIRIN [Concomitant]
  10. CASANTHRANOL/DOCUSATE SODIUM [Concomitant]
  11. CRANBERRY CAPSULES [Concomitant]
  12. LORAZEPAM [Concomitant]
  13. ONDANSETRON [Concomitant]
  14. PROMETHAZINE [Concomitant]
  15. PALONOSETRON [Concomitant]
  16. DEXAEMTHASONE [Concomitant]

REACTIONS (1)
  - FEBRILE NEUTROPENIA [None]
